FAERS Safety Report 9168660 (Version 2)
Quarter: 2013Q2

REPORT INFORMATION
  Report Type: Spontaneous
  Country: US (occurrence: US)
  Receive Date: 20130318
  Receipt Date: 20130610
  Transmission Date: 20140414
  Serious: Yes (Death)
  Sender: FDA-Public Use
  Company Number: US-BRISTOL-MYERS SQUIBB COMPANY-17464330

PATIENT
  Age: 54 Year
  Sex: Female

DRUGS (5)
  1. SPRYCEL (CML) TABS 70 MG [Suspect]
     Route: 048
     Dates: start: 20121026
  2. CARVEDILOL [Concomitant]
  3. FUROSEMIDE [Concomitant]
  4. KLOR-CON [Concomitant]
     Dosage: 1DF= 10-UNITS NOS
  5. SOTALOL [Concomitant]

REACTIONS (1)
  - Sepsis [Fatal]
